FAERS Safety Report 13859915 (Version 1)
Quarter: 2017Q3

REPORT INFORMATION
  Report Type: Spontaneous
  Country: US (occurrence: US)
  Receive Date: 20170811
  Receipt Date: 20170811
  Transmission Date: 20171127
  Serious: Yes (Hospitalization)
  Sender: FDA-Public Use
  Company Number: US-GLAXOSMITHKLINE-US2017GSK124429

PATIENT
  Age: 52 Year
  Sex: Female

DRUGS (4)
  1. FLOLAN [Suspect]
     Active Substance: EPOPROSTENOL SODIUM
     Indication: PULMONARY ARTERIAL HYPERTENSION
     Dosage: 12 NG/KG/MIN, CO
     Route: 042
     Dates: start: 20120809, end: 20170728
  2. ADCIRCA [Concomitant]
     Active Substance: TADALAFIL
  3. FLOLAN [Suspect]
     Active Substance: EPOPROSTENOL SODIUM
     Indication: PULMONARY ARTERIAL HYPERTENSION
  4. FLOLAN [Suspect]
     Active Substance: EPOPROSTENOL SODIUM
     Dosage: 6 NG/KG/MIN, CO
     Route: 042

REACTIONS (7)
  - Nausea [Unknown]
  - Migraine [Unknown]
  - Catheterisation cardiac [Unknown]
  - Memory impairment [Unknown]
  - Drug dose omission [Recovered/Resolved]
  - Vomiting [Unknown]
  - Dizziness [Unknown]

NARRATIVE: CASE EVENT DATE: 201707
